FAERS Safety Report 9310872 (Version 3)
Quarter: 2013Q2

REPORT INFORMATION
  Report Type: Spontaneous
  Country: DE (occurrence: DE)
  Receive Date: 20130528
  Receipt Date: 20130627
  Transmission Date: 20140414
  Serious: Yes (Hospitalization)
  Sender: FDA-Public Use
  Company Number: DE-AMGEN-DEUSP2013037145

PATIENT
  Age: 22 Year
  Sex: Female

DRUGS (15)
  1. NEULASTA [Suspect]
     Indication: PRODUCT USED FOR UNKNOWN INDICATION
     Dosage: 6 MG, UNK
     Route: 065
     Dates: start: 20130514
  2. ADRIAMYCIN /00330901/ [Suspect]
     Indication: HODGKIN^S DISEASE
     Dosage: 55 MG, UNK
     Dates: start: 20130510
  3. BLEOMYCIN [Suspect]
     Indication: HODGKIN^S DISEASE
     Dosage: 16 MG, UNK
     Dates: start: 20130516
  4. PROCARBAZINE [Suspect]
     Indication: HODGKIN^S DISEASE
     Dosage: UNK
     Dates: start: 20130510
  5. VINCRISTINE [Suspect]
     Indication: HODGKIN^S DISEASE
     Dosage: 2 MG, UNK
     Dates: start: 20130516
  6. CYCLOPHOSPHAMIDE [Suspect]
     Indication: HODGKIN^S DISEASE
     Dosage: 2 MG, UNK
     Dates: start: 20130510
  7. PREDNISONE [Suspect]
     Indication: HODGKIN^S DISEASE
     Dosage: UNK
     Dates: start: 20130510
  8. DECORTIN H [Suspect]
     Indication: HODGKIN^S DISEASE
     Dosage: 65 MG, UNK
     Dates: start: 20130510, end: 20130523
  9. ETOPOPHOS [Suspect]
     Indication: HODGKIN^S DISEASE
     Dosage: 320 MG, UNK
     Dates: start: 20130510, end: 20130513
  10. PANTOZOL                           /01263204/ [Concomitant]
     Dosage: 2X40, UNK
  11. NACL [Concomitant]
     Dosage: 0.9 % 1 L, UNK
     Dates: start: 20130510, end: 20130513
  12. ALOXI [Concomitant]
     Dosage: 250 UNK, UNK
     Dates: start: 20130510
  13. EMEND                              /01627301/ [Concomitant]
     Dosage: 125 UNK, UNK
     Dates: start: 20130510
  14. EMEND                              /01627301/ [Concomitant]
     Dosage: 80 UNK, UNK
     Dates: start: 20130511, end: 20130516
  15. COTRIM FORTE [Concomitant]
     Dosage: UNK

REACTIONS (4)
  - Pain [Recovered/Resolved]
  - Oropharyngeal pain [Recovered/Resolved]
  - Mucosal inflammation [Recovered/Resolved]
  - Herpes simplex [Recovered/Resolved]
